FAERS Safety Report 23420043 (Version 2)
Quarter: 2024Q1

REPORT INFORMATION
  Report Type: Spontaneous
  Country: IT (occurrence: None)
  Receive Date: 20240119
  Receipt Date: 20240226
  Transmission Date: 20240410
  Serious: Yes (Death, Hospitalization)
  Sender: FDA-Public Use
  Company Number: 2024A011953

PATIENT
  Age: 84 Year
  Sex: Male

DRUGS (1)
  1. EVUSHELD [Suspect]
     Active Substance: CILGAVIMAB\TIXAGEVIMAB
     Indication: COVID-19 prophylaxis
     Dosage: DOSAGE: 300 UNITS: MILLIGRAMS FREQUENCY OF ADMINISTRATION: TOTAL ROUTE ADMINISTRATION: INTRAMUSCU...
     Route: 030
     Dates: start: 20221001, end: 20221001

REACTIONS (2)
  - Drug ineffective [Fatal]
  - COVID-19 pneumonia [Fatal]

NARRATIVE: CASE EVENT DATE: 20230102
